FAERS Safety Report 7649601-8 (Version None)
Quarter: 2011Q3

REPORT INFORMATION
  Report Type: 
  Country: None (occurrence: None)
  Receive Date: 20110727
  Receipt Date: 20110719
  Transmission Date: 20111222
  Serious: Yes (Hospitalization)
  Sender: FDA-Public Use
  Company Number: 2011-US-0073

PATIENT
  Age: 58 Year
  Sex: Female
  Weight: 62.5964 kg

DRUGS (2)
  1. OXYCOCODNE W/PARACETAMOL (OXYCODONE HYDROCHLORIDE W/PARACETAMOL) [Concomitant]
  2. ABSTRAL [Suspect]
     Indication: BREAKTHROUGH PAIN
     Dosage: 1 Q 4 HOURS, SUBLINGUAL
     Route: 060

REACTIONS (1)
  - HOSPITALISATION [None]
